FAERS Safety Report 4438862-4 (Version None)
Quarter: 2004Q3

REPORT INFORMATION
  Report Type: 
  Country: None (occurrence: None)
  Receive Date: 20040901
  Receipt Date: 20040716
  Transmission Date: 20050211
  Serious: Yes (Other)
  Sender: FDA-Public Use
  Company Number: 200417262GDDC

PATIENT
  Age: 57 Year
  Sex: Female
  Weight: 71 kg

DRUGS (8)
  1. LANTUS [Suspect]
     Indication: DIABETES MELLITUS NON-INSULIN-DEPENDENT
     Dosage: DOSE UNIT: UNITS
     Route: 058
     Dates: start: 20040430, end: 20040715
  2. METFORMIN HCL [Concomitant]
     Route: 048
     Dates: start: 20000101
  3. ASPIRIN [Concomitant]
     Route: 048
     Dates: start: 20020101
  4. SIMVASTATIN [Concomitant]
     Route: 048
     Dates: start: 20030101
  5. AMLODIPINE [Concomitant]
     Route: 048
     Dates: start: 20040101
  6. FLUTICASONE PROPIONATE [Concomitant]
     Dates: start: 19990101
  7. EVOREL CONTI [Concomitant]
     Route: 062
     Dates: start: 19990101
  8. INNOZIDE [Concomitant]
     Route: 048
     Dates: start: 19910101

REACTIONS (3)
  - OEDEMA PERIPHERAL [None]
  - PAIN [None]
  - PARAESTHESIA [None]
